FAERS Safety Report 5496498-0 (Version None)
Quarter: 2007Q4

REPORT INFORMATION
  Report Type: 
  Country: None (occurrence: None)
  Receive Date: 20071023
  Receipt Date: 20071023
  Transmission Date: 20080405
  Serious: Yes (Life-Threatening, Hospitalization)
  Sender: FDA-Public Use
  Company Number: None

PATIENT
  Sex: Female

DRUGS (1)
  1. HUMIRA [Suspect]
     Indication: CROHN'S DISEASE
     Dosage: 40MG X 4 DAY 1 SUB-Q
     Route: 058
     Dates: start: 20070818

REACTIONS (3)
  - CARDIAC DISORDER [None]
  - RENAL IMPAIRMENT [None]
  - SEPSIS [None]
